FAERS Safety Report 17440691 (Version 1)
Quarter: 2020Q1

REPORT INFORMATION
  Report Type: Spontaneous
  Country: US (occurrence: US)
  Receive Date: 20200220
  Receipt Date: 20200220
  Transmission Date: 20200409
  Serious: No
  Sender: FDA-Public Use
  Company Number: None

PATIENT
  Age: 74 Year
  Sex: Female

DRUGS (2)
  1. CILOSTAZOL. [Suspect]
     Active Substance: CILOSTAZOL
     Route: 048
     Dates: start: 20200110, end: 20200213
  2. ATENOLOL. [Suspect]
     Active Substance: ATENOLOL
     Route: 048
     Dates: start: 20200110, end: 20200213

REACTIONS (4)
  - Wrong product stored [None]
  - Wrong product administered [None]
  - Product appearance confusion [None]
  - Product packaging confusion [None]

NARRATIVE: CASE EVENT DATE: 20200213
